FAERS Safety Report 14907999 (Version 1)
Quarter: 2018Q2

REPORT INFORMATION
  Report Type: Report from Study
  Country: DE (occurrence: DE)
  Receive Date: 20180517
  Receipt Date: 20180517
  Transmission Date: 20180711
  Serious: Yes (Other)
  Sender: FDA-Public Use
  Company Number: DE-ROCHE-2121848

PATIENT
  Age: 40 Year
  Sex: Male
  Weight: 70 kg

DRUGS (4)
  1. METYPRED [Concomitant]
     Active Substance: METHYLPREDNISOLONE
     Indication: MULTIPLE SCLEROSIS
     Route: 042
     Dates: start: 20180503, end: 20180503
  2. METYPRED [Concomitant]
     Active Substance: METHYLPREDNISOLONE
     Indication: HYPOAESTHESIA
     Route: 042
     Dates: start: 20180507
  3. OCRELIZUMAB. [Suspect]
     Active Substance: OCRELIZUMAB
     Indication: PROGRESSIVE MULTIPLE SCLEROSIS
     Route: 042
     Dates: start: 20180419
  4. FENISTIL (GERMANY) [Concomitant]
     Dosage: INDICATION: INFUSION PROPHYLAXIS
     Route: 042
     Dates: start: 20180503, end: 20180503

REACTIONS (2)
  - Hypoaesthesia [Unknown]
  - Multiple sclerosis [Unknown]

NARRATIVE: CASE EVENT DATE: 20180420
